FAERS Safety Report 13819831 (Version 1)
Quarter: 2017Q3

REPORT INFORMATION
  Report Type: Spontaneous
  Country: CA (occurrence: US)
  Receive Date: 20170801
  Receipt Date: 20170801
  Transmission Date: 20171127
  Serious: Yes (Disabling, Other)
  Sender: FDA-Public Use
  Company Number: None

PATIENT
  Age: 32 Year
  Sex: Male
  Weight: 86.5 kg

DRUGS (9)
  1. CHRYSIN [Concomitant]
     Active Substance: CHRYSIN
  2. RHODIOLA [Concomitant]
     Active Substance: HERBALS
  3. KIRKLAND SIGNATURE MINOXIDIL [Suspect]
     Active Substance: MINOXIDIL
     Indication: ANDROGENETIC ALOPECIA
     Dosage: QUANTITY:0.75 CAPFUL;?
     Route: 061
     Dates: start: 20161101, end: 20170301
  4. CORTALIGN [Concomitant]
  5. ZINC. [Concomitant]
     Active Substance: ZINC
  6. VITAMIN D [Concomitant]
     Active Substance: CHOLECALCIFEROL
  7. OMEGA 3 [Concomitant]
     Active Substance: OMEGA-3 FATTY ACIDS
  8. VENLAFAXINE [Concomitant]
     Active Substance: VENLAFAXINE HYDROCHLORIDE
  9. L-ARGININE [Concomitant]
     Active Substance: ARGININE

REACTIONS (10)
  - Cortisol increased [None]
  - Depression [None]
  - Impaired quality of life [None]
  - Intentional product use issue [None]
  - Suicidal ideation [None]
  - Blood oestrogen increased [None]
  - Blood testosterone increased [None]
  - Loss of libido [None]
  - Penile size reduced [None]
  - Erectile dysfunction [None]

NARRATIVE: CASE EVENT DATE: 20170208
